FAERS Safety Report 9678978 (Version 2)
Quarter: 2013Q4

REPORT INFORMATION
  Report Type: Spontaneous
  Country: US (occurrence: None)
  Receive Date: 20131107
  Receipt Date: 20131120
  Transmission Date: 20140711
  Serious: Yes (Hospitalization)
  Sender: FDA-Public Use
  Company Number: 2013P1020727

PATIENT
  Age: 65 Year
  Sex: Male

DRUGS (4)
  1. DIGOXIN [Suspect]
  2. FLOLAN (EPOPROSTENOL SODIUM STERILE POWDER) [Suspect]
     Indication: PULMONARY ARTERIAL HYPERTENSION
     Route: 042
     Dates: start: 20090514
  3. ADCIRCA (TADALAFIL) [Concomitant]
  4. WARFARIN SODIUM [Suspect]

REACTIONS (6)
  - Infusion site erythema [None]
  - Infusion site pain [None]
  - Infusion site bruising [None]
  - Renal disorder [None]
  - Blood pressure decreased [None]
  - Heart rate decreased [None]
